FAERS Safety Report 6121622-6 (Version None)
Quarter: 2009Q1

REPORT INFORMATION
  Report Type: 
  Country: None (occurrence: None)
  Receive Date: 20090317
  Receipt Date: 20090305
  Transmission Date: 20090719
  Serious: Yes (Life-Threatening, Hospitalization)
  Sender: FDA-Public Use
  Company Number: FR-ABBOTT-09P-056-0558429-00

PATIENT
  Sex: Female
  Weight: 80 kg

DRUGS (4)
  1. HUMIRA [Suspect]
     Indication: CROHN'S DISEASE
     Route: 058
     Dates: start: 20080101, end: 20090127
  2. HUMIRA [Suspect]
     Indication: ANKYLOSING SPONDYLITIS
  3. AZATHIOPRINE [Concomitant]
     Indication: CROHN'S DISEASE
     Dates: start: 20060101, end: 20080901
  4. AZATHIOPRINE [Concomitant]
     Indication: ANKYLOSING SPONDYLITIS

REACTIONS (4)
  - AORTIC THROMBOSIS [None]
  - MESENTERIC ARTERY THROMBOSIS [None]
  - PERIPHERAL ISCHAEMIA [None]
  - VULVITIS [None]
